FAERS Safety Report 10866101 (Version 1)
Quarter: 2015Q1

REPORT INFORMATION
  Report Type: Spontaneous
  Country: FR (occurrence: FR)
  Receive Date: 20150225
  Receipt Date: 20150225
  Transmission Date: 20150721
  Serious: Yes (Death, Other)
  Sender: FDA-Public Use
  Company Number: FR-CIPLA LTD.-2015FR01452

PATIENT
  Sex: Female

DRUGS (5)
  1. IRINOTECAN [Suspect]
     Active Substance: IRINOTECAN
     Indication: COLORECTAL CANCER METASTATIC
     Dosage: 23 MG/M2/WEEK, 30 MIN INFUSION ON DAYS 1 AND 15
  2. IRINOTECAN [Suspect]
     Active Substance: IRINOTECAN
     Dosage: 80 MG/M2, RECOMMENDED STARTIGN DOSE
  3. 5-FLUOROURACIL [Suspect]
     Active Substance: FLUOROURACIL
     Indication: COLORECTAL CANCER METASTATIC
     Dosage: 1806 MG/M2/WEEK, 24 H CONTINUOUS INFUSION, ON DAYS 1, 8, 15 AND 22
  4. OXALIPLATIN. [Suspect]
     Active Substance: OXALIPLATIN
     Indication: COLORECTAL CANCER METASTATIC
     Dosage: 24 MG/M2/WEEK, 2 H INFUSION ON DAYS 8 AND 22
  5. OXALIPLATIN. [Suspect]
     Active Substance: OXALIPLATIN
     Dosage: 60 MG/M2, RECOMMENDED STATING DOSE

REACTIONS (2)
  - Diarrhoea [Unknown]
  - Septic shock [Fatal]
